FAERS Safety Report 6820960-9 (Version None)
Quarter: 2010Q3

REPORT INFORMATION
  Report Type: 
  Country: None (occurrence: None)
  Receive Date: 20100707
  Receipt Date: 20071025
  Transmission Date: 20110219
  Serious: Yes (Other)
  Sender: FDA-Public Use
  Company Number: US-PFIZER INC-2007071913

PATIENT
  Sex: Female
  Weight: 86.363 kg

DRUGS (9)
  1. SERTRALINE [Suspect]
     Indication: PAIN
     Dates: start: 20060101
  2. SERTRALINE [Suspect]
     Indication: DEPRESSION
  3. SERTRALINE [Suspect]
     Indication: ANGER
  4. VERAPAMIL [Concomitant]
  5. TOPAMAX [Concomitant]
  6. AMBIEN [Concomitant]
  7. TIZANIDINE HYDROCHLORIDE [Concomitant]
  8. LEVOXYL [Concomitant]
  9. ALL OTHER THERAPEUTIC PRODUCTS [Concomitant]

REACTIONS (8)
  - AGITATION [None]
  - DRUG INEFFECTIVE [None]
  - FRUSTRATION [None]
  - HOMICIDAL IDEATION [None]
  - INAPPROPRIATE AFFECT [None]
  - IRRITABILITY [None]
  - LOGORRHOEA [None]
  - SUICIDAL IDEATION [None]
